FAERS Safety Report 6071476-1 (Version None)
Quarter: 2009Q1

REPORT INFORMATION
  Report Type: 
  Country: None (occurrence: None)
  Receive Date: 20090210
  Receipt Date: 20090128
  Transmission Date: 20090719
  Serious: Yes (Other)
  Sender: FDA-Public Use
  Company Number: GB-RANBAXY-2009RR-21609

PATIENT
  Age: 15 Year
  Sex: Female

DRUGS (2)
  1. ISOTRETINOIN [Suspect]
     Indication: POISONING DELIBERATE
     Dosage: 350 MG, UNK
  2. ISOTRETINOIN [Suspect]
     Indication: ACNE

REACTIONS (2)
  - ABDOMINAL DISCOMFORT [None]
  - POISONING DELIBERATE [None]
